FAERS Safety Report 18284731 (Version 3)
Quarter: 2020Q4

REPORT INFORMATION
  Report Type: Report from Study
  Country: None (occurrence: CA)
  Receive Date: 20200919
  Receipt Date: 20201113
  Transmission Date: 20210113
  Serious: Yes (Other)
  Sender: FDA-Public Use
  Company Number: CA-ABBVIE-20K-028-3569686-00

PATIENT
  Sex: Female
  Weight: 60.2 kg

DRUGS (1)
  1. RINVOQ [Suspect]
     Active Substance: UPADACITINIB
     Indication: RHEUMATOID ARTHRITIS
     Route: 048
     Dates: start: 20200524, end: 20200929

REACTIONS (9)
  - Back pain [Recovering/Resolving]
  - Shoulder arthroplasty [Unknown]
  - Back pain [Recovered/Resolved]
  - Pain in extremity [Recovering/Resolving]
  - Chest pain [Recovered/Resolved]
  - Palpitations [Recovering/Resolving]
  - Myalgia [Recovered/Resolved]
  - Sleep apnoea syndrome [Recovering/Resolving]
  - Arthralgia [Recovering/Resolving]

NARRATIVE: CASE EVENT DATE: 2020
